FAERS Safety Report 14579735 (Version 1)
Quarter: 2018Q1

REPORT INFORMATION
  Report Type: Spontaneous
  Country: NZ (occurrence: NZ)
  Receive Date: 20180227
  Receipt Date: 20180227
  Transmission Date: 20180509
  Serious: Yes (Hospitalization)
  Sender: FDA-Public Use
  Company Number: NZ-BAXTER-2018BAX005899

PATIENT
  Sex: Female

DRUGS (7)
  1. PANADOL [Concomitant]
     Active Substance: ACETAMINOPHEN
     Indication: PREMEDICATION
     Route: 048
     Dates: start: 20180119
  2. METHYLPREDNISOLONE. [Concomitant]
     Active Substance: METHYLPREDNISOLONE
     Indication: PREMEDICATION
     Route: 042
     Dates: start: 20180119
  3. SODIUM CHLORIDE, 0.9%, SOLUTION FOR INFUSION [Suspect]
     Active Substance: SODIUM CHLORIDE
     Dosage: RUNNING AT A SLOW RATE OF 50ML PER HOUR, DOSE RE-INTRODUCED
     Route: 065
     Dates: start: 20180119
  4. MABTHERA [Suspect]
     Active Substance: RITUXIMAB
     Dosage: 50 ML PER HOUR, DOSE RE-INTRODUCED
     Route: 065
     Dates: start: 20180119
  5. LORATADINE. [Concomitant]
     Active Substance: LORATADINE
     Indication: PREMEDICATION
     Route: 048
     Dates: start: 20180119
  6. MABTHERA [Suspect]
     Active Substance: RITUXIMAB
     Indication: PRODUCT USED FOR UNKNOWN INDICATION
     Dosage: 1 GRAM MADE UP TO 630 ML WITH NORMAL SALINE, AT THE SLOWEST RATE OF 25 ML PER HOUR AND INCREASED EVE
     Route: 065
     Dates: start: 20180119, end: 20180119
  7. SODIUM CHLORIDE, 0.9%, SOLUTION FOR INFUSION [Suspect]
     Active Substance: SODIUM CHLORIDE
     Indication: MEDICATION DILUTION
     Dosage: 25 ML PER HOUR
     Route: 065
     Dates: start: 20180119, end: 20180119

REACTIONS (2)
  - Oropharyngeal pain [Recovering/Resolving]
  - Rash erythematous [Recovering/Resolving]

NARRATIVE: CASE EVENT DATE: 20180119
